FAERS Safety Report 7981773-8 (Version None)
Quarter: 2011Q4

REPORT INFORMATION
  Report Type: 
  Country: None (occurrence: None)
  Receive Date: 20111215
  Receipt Date: 20111130
  Transmission Date: 20120403
  Serious: Yes (Other)
  Sender: FDA-Public Use
  Company Number: JP-AMGEN-JPNCT2011018385

PATIENT
  Age: 65 Year
  Sex: Female
  Weight: 38 kg

DRUGS (16)
  1. FLUOROURACIL [Suspect]
     Route: 040
     Dates: start: 20110527, end: 20110715
  2. FLUOROURACIL [Suspect]
     Indication: COLORECTAL CANCER
     Route: 040
     Dates: start: 20101029, end: 20110304
  3. DECADRON [Concomitant]
     Indication: PROPHYLAXIS
     Route: 048
     Dates: start: 20101030, end: 20110308
  4. PANITUMUMAB [Suspect]
     Indication: COLORECTAL CANCER
     Dosage: 6 MG/KG, Q2WK
     Route: 041
     Dates: start: 20101029, end: 20101126
  5. EMEND [Concomitant]
     Indication: PROPHYLAXIS
     Route: 048
     Dates: start: 20101029, end: 20110307
  6. FLUOROURACIL [Suspect]
     Route: 041
     Dates: start: 20101029, end: 20110304
  7. FLUOROURACIL [Suspect]
     Route: 041
     Dates: start: 20110527, end: 20110715
  8. BASEN [Concomitant]
     Indication: DIABETES MELLITUS
     Route: 048
     Dates: start: 20100731
  9. LEVOLEUCOVORIN CALCIUM [Concomitant]
     Route: 041
     Dates: start: 20110527, end: 20110715
  10. CAMPTOSAR [Suspect]
     Indication: COLORECTAL CANCER
     Route: 041
     Dates: start: 20101029, end: 20110304
  11. CORTICOSTEROIDS [Concomitant]
     Indication: PROPHYLAXIS
     Dosage: UNK
     Route: 065
  12. ALOXI [Concomitant]
     Indication: PROPHYLAXIS
     Route: 042
     Dates: start: 20101029, end: 20110304
  13. PANITUMUMAB [Suspect]
     Dosage: 6 MG/KG, Q2WK
     Route: 041
     Dates: start: 20110107, end: 20110304
  14. CAMPTOSAR [Suspect]
     Route: 041
     Dates: start: 20110527, end: 20110715
  15. LEVOLEUCOVORIN CALCIUM [Concomitant]
     Indication: COLORECTAL CANCER
     Route: 041
     Dates: start: 20101029, end: 20110304
  16. DECADRON [Concomitant]
     Route: 042
     Dates: start: 20101029, end: 20110304

REACTIONS (3)
  - DECREASED APPETITE [None]
  - INTERSTITIAL LUNG DISEASE [None]
  - DERMATITIS ACNEIFORM [None]
